FAERS Safety Report 21640372 (Version 3)
Quarter: 2023Q1

REPORT INFORMATION
  Report Type: Spontaneous
  Country: JP (occurrence: JP)
  Receive Date: 20221124
  Receipt Date: 20230117
  Transmission Date: 20230418
  Serious: Yes (Other)
  Sender: FDA-Public Use
  Company Number: JP-002147023-NVSJ2022JP101676

PATIENT
  Age: 89 Year
  Sex: Female

DRUGS (4)
  1. ENTRESTO [Suspect]
     Active Substance: SACUBITRIL\VALSARTAN
     Indication: Hypertension
     Dosage: 200 MG, QD
     Route: 048
     Dates: start: 20211203
  2. TOPIROXOSTAT [Concomitant]
     Active Substance: TOPIROXOSTAT
     Indication: Product used for unknown indication
     Dosage: UNK
     Route: 065
     Dates: start: 20210618
  3. FERRUM [Concomitant]
     Indication: Product used for unknown indication
     Dosage: UNK
     Route: 048
     Dates: start: 20210618
  4. DAPRODUSTAT [Concomitant]
     Active Substance: DAPRODUSTAT
     Indication: Anaemia
     Dosage: UNK
     Route: 065
     Dates: start: 20220408

REACTIONS (1)
  - Hyperkalaemia [Recovering/Resolving]

NARRATIVE: CASE EVENT DATE: 20221021
